FAERS Safety Report 24022069 (Version 1)
Quarter: 2024Q2

REPORT INFORMATION
  Report Type: Report from Study
  Country: CA (occurrence: CA)
  Receive Date: 20240627
  Receipt Date: 20240627
  Transmission Date: 20240716
  Serious: No
  Sender: FDA-Public Use
  Company Number: CA-ROCHE-3544727

PATIENT
  Age: 84 Year
  Sex: Female

DRUGS (1)
  1. VABYSMO [Suspect]
     Active Substance: FARICIMAB\FARICIMAB-SVOA
     Indication: Neovascular age-related macular degeneration
     Dosage: 6 MG/0.05 ML
     Route: 050
     Dates: start: 20230823, end: 20240123

REACTIONS (1)
  - Drug intolerance [Unknown]
